FAERS Safety Report 5029072-0 (Version None)
Quarter: 2006Q2

REPORT INFORMATION
  Report Type: 
  Country: None (occurrence: None)
  Receive Date: 20060501
  Receipt Date: 20060328
  Transmission Date: 20061013
  Serious: No
  Sender: FDA-Public Use
  Company Number: 200613000US

PATIENT
  Sex: Female

DRUGS (3)
  1. KETEK [Suspect]
     Dates: start: 20060301
  2. PROCRIT [Concomitant]
  3. NEUPOGEN [Concomitant]

REACTIONS (1)
  - WHITE BLOOD CELL COUNT DECREASED [None]
